FAERS Safety Report 16355714 (Version 5)
Quarter: 2020Q2

REPORT INFORMATION
  Report Type: Spontaneous
  Country: JP (occurrence: JP)
  Receive Date: 20190525
  Receipt Date: 20200617
  Transmission Date: 20200713
  Serious: Yes (Hospitalization, Other)
  Sender: FDA-Public Use
  Company Number: PHJP2019JP005683

PATIENT
  Age: 68 Year
  Sex: Male
  Weight: 97 kg

DRUGS (7)
  1. COSENTYX [Suspect]
     Active Substance: SECUKINUMAB
     Dosage: 300 MG, QW
     Route: 058
     Dates: start: 20180817, end: 20180824
  2. MARDUOX [Concomitant]
     Active Substance: BETAMETHASONE BUTYRATE PROPIONATE\MAXACALCITOL
     Indication: RASH
     Dosage: UNK UNK, QD
     Route: 061
     Dates: start: 20180810, end: 20180827
  3. COSENTYX [Suspect]
     Active Substance: SECUKINUMAB
     Dosage: 300 MG, QW AND 4W
     Route: 058
     Dates: start: 20181029, end: 20190415
  4. LOXOPROFEN NA [Concomitant]
     Active Substance: LOXOPROFEN SODIUM
     Indication: PAIN
     Dosage: 50 MG, UNK
     Route: 062
     Dates: start: 20190121
  5. COSENTYX [Suspect]
     Active Substance: SECUKINUMAB
     Indication: PSORIATIC ARTHROPATHY
     Dosage: 300 MG, QW
     Route: 058
     Dates: start: 20180810
  6. PREDNISOLONE. [Suspect]
     Active Substance: PREDNISOLONE
     Indication: PAIN
     Dosage: 2 MG, QD
     Route: 048
     Dates: start: 20180709, end: 20181021
  7. COSENTYX [Suspect]
     Active Substance: SECUKINUMAB
     Dosage: 300 MG, QW AND 4W
     Route: 058
     Dates: start: 20181022

REACTIONS (4)
  - Abdominal pain [Recovered/Resolved]
  - Pain [Unknown]
  - Diverticulitis [Recovered/Resolved]
  - Prostate cancer stage II [Recovering/Resolving]

NARRATIVE: CASE EVENT DATE: 20180827
